FAERS Safety Report 19695656 (Version 1)
Quarter: 2021Q3

REPORT INFORMATION
  Report Type: Spontaneous
  Country: US (occurrence: US)
  Receive Date: 20210812
  Receipt Date: 20210812
  Transmission Date: 20211014
  Serious: Yes (Life-Threatening, Other)
  Sender: FDA-Public Use
  Company Number: None

PATIENT
  Age: 66 Year
  Sex: Female
  Weight: 46.5 kg

DRUGS (3)
  1. ENVARSUS XR [Suspect]
     Active Substance: TACROLIMUS
     Route: 048
     Dates: start: 20200424
  2. PREDNISONE 5MG [Concomitant]
     Active Substance: PREDNISONE
  3. MMF 1000MG [Concomitant]
     Dates: start: 20061116, end: 20210807

REACTIONS (7)
  - Headache [None]
  - Cerebral mass effect [None]
  - Confusional state [None]
  - B-cell lymphoma [None]
  - Clumsiness [None]
  - Cerebral haemorrhage [None]
  - Brain oedema [None]

NARRATIVE: CASE EVENT DATE: 20210709
